APPROVED DRUG PRODUCT: TAMOXIFEN CITRATE
Active Ingredient: TAMOXIFEN CITRATE
Strength: EQ 20MG BASE
Dosage Form/Route: TABLET;ORAL
Application: A076027 | Product #002
Applicant: ROXANE LABORATORIES INC
Approved: Feb 20, 2003 | RLD: No | RS: No | Type: DISCN